FAERS Safety Report 20438608 (Version 5)
Quarter: 2022Q3

REPORT INFORMATION
  Report Type: Report from Study
  Country: CZ (occurrence: CZ)
  Receive Date: 20220207
  Receipt Date: 20220708
  Transmission Date: 20221027
  Serious: Yes (Hospitalization, Other)
  Sender: FDA-Public Use
  Company Number: CZ-PFIZER INC-2021408631

PATIENT
  Age: 33 Year
  Sex: Male
  Weight: 73.7 kg

DRUGS (1)
  1. ABROCITINIB [Suspect]
     Active Substance: ABROCITINIB
     Indication: Dermatitis atopic
     Dosage: 200 MG, DAILY
     Route: 048
     Dates: start: 20191025, end: 20210119

REACTIONS (1)
  - Ophthalmic herpes simplex [Not Recovered/Not Resolved]

NARRATIVE: CASE EVENT DATE: 20210401
